FAERS Safety Report 14122238 (Version 1)
Quarter: 2017Q4

REPORT INFORMATION
  Report Type: Spontaneous
  Country: US (occurrence: US)
  Receive Date: 20171024
  Receipt Date: 20171024
  Transmission Date: 20180321
  Serious: Yes (Hospitalization, Other)
  Sender: FDA-Public Use
  Company Number: US-BAYER-2017-200286

PATIENT
  Age: 4 Year
  Sex: Male

DRUGS (1)
  1. MIRALAX [Suspect]
     Active Substance: POLYETHYLENE GLYCOL 3350
     Indication: CONSTIPATION
     Dosage: 2 DF, QD
     Route: 048
     Dates: start: 200210, end: 200610

REACTIONS (7)
  - Psychotic disorder [Recovered/Resolved]
  - Product use in unapproved indication [None]
  - Anger [Recovered/Resolved]
  - Tic [Not Recovered/Not Resolved]
  - Drug administered to patient of inappropriate age [None]
  - Constipation [Recovered/Resolved]
  - Cognitive disorder [Recovered/Resolved with Sequelae]

NARRATIVE: CASE EVENT DATE: 200210
